FAERS Safety Report 23154228 (Version 1)
Quarter: 2023Q4

REPORT INFORMATION
  Report Type: Spontaneous
  Country: FR (occurrence: FR)
  Receive Date: 20231107
  Receipt Date: 20231107
  Transmission Date: 20240109
  Serious: Yes (Other)
  Sender: FDA-Public Use
  Company Number: FR-SUN PHARMACEUTICAL INDUSTRIES LTD-2023RR-416670

PATIENT
  Age: 86 Year
  Sex: Female
  Weight: 49 kg

DRUGS (8)
  1. NOREPINEPHRINE [Suspect]
     Active Substance: NOREPINEPHRINE
     Indication: Induction of anaesthesia
     Dosage: UNK
     Route: 040
     Dates: start: 20230616, end: 20230616
  2. CEFOXITIN [Suspect]
     Active Substance: CEFOXITIN SODIUM
     Indication: Antibiotic prophylaxis
     Dosage: 2 GRAM, DAILY
     Route: 040
     Dates: start: 20230616, end: 20230616
  3. METRONIDAZOLE [Suspect]
     Active Substance: METRONIDAZOLE
     Indication: Antibiotic prophylaxis
     Dosage: 1000 MILLIGRAM, DAILY
     Route: 040
     Dates: start: 20230616, end: 20230616
  4. SUFENTANIL [Suspect]
     Active Substance: SUFENTANIL
     Indication: Induction of anaesthesia
     Dosage: 15 MCG, DAILY
     Route: 040
     Dates: start: 20230616, end: 20230616
  5. DEXAMETHASONE [Suspect]
     Active Substance: DEXAMETHASONE
     Indication: Prophylaxis
     Dosage: 8 MILLIGRAM, DAILY
     Route: 040
     Dates: start: 20230616, end: 20230616
  6. ATRACURIUM [Suspect]
     Active Substance: ATRACURIUM
     Indication: Induction of anaesthesia
     Dosage: 30 MILLIGRAM, DAILY
     Route: 040
     Dates: start: 20230616, end: 20230616
  7. LIDOCAINE [Suspect]
     Active Substance: LIDOCAINE
     Indication: Induction of anaesthesia
     Dosage: 80 MILLIGRAM, DAILY
     Route: 040
     Dates: start: 20230616, end: 20230616
  8. PROPOFOL [Suspect]
     Active Substance: PROPOFOL
     Indication: Induction of anaesthesia
     Dosage: 150 MILLIGRAM, DAILY
     Route: 040
     Dates: start: 20230616, end: 20230616

REACTIONS (1)
  - Rash [Recovered/Resolved]

NARRATIVE: CASE EVENT DATE: 20230616
